FAERS Safety Report 6236115-5 (Version None)
Quarter: 2009Q2

REPORT INFORMATION
  Report Type: 
  Country: None (occurrence: None)
  Receive Date: 20090619
  Receipt Date: 20090611
  Transmission Date: 20091009
  Serious: Yes (Death, Hospitalization, Other)
  Sender: FDA-Public Use
  Company Number: US-PFIZER INC-2009219866

PATIENT
  Sex: Female
  Weight: 58.3 kg

DRUGS (11)
  1. CAMPTOSAR [Suspect]
     Dosage: 85 MG, WEEKLY FOR 3 WEEKS
     Dates: start: 20090401
  2. ACETYLSALICYLIC ACID [Concomitant]
  3. AMIODARONE [Concomitant]
  4. AMITRIPTYLINE [Concomitant]
  5. COREG [Concomitant]
  6. PLAVIX [Concomitant]
  7. DIGOXIN [Concomitant]
  8. LASIX [Concomitant]
  9. LOPRESSOR [Concomitant]
  10. NITROGLYCERIN [Concomitant]
  11. PERCOCET [Concomitant]

REACTIONS (4)
  - CARDIAC FAILURE [None]
  - DEHYDRATION [None]
  - NEUTROPENIA [None]
  - VENTRICULAR TACHYCARDIA [None]
